FAERS Safety Report 15918981 (Version 2)
Quarter: 2019Q1

REPORT INFORMATION
  Report Type: Spontaneous
  Country: JP (occurrence: JP)
  Receive Date: 20190205
  Receipt Date: 20190312
  Transmission Date: 20190417
  Serious: Yes (Hospitalization, Disabling)
  Sender: FDA-Public Use
  Company Number: JP-AMICUS-AMI_349AA

PATIENT
  Age: 38 Year
  Sex: Female
  Weight: 41 kg

DRUGS (1)
  1. GALAFOLD [Suspect]
     Active Substance: MIGALASTAT HYDROCHLORIDE
     Indication: FABRY^S DISEASE
     Dosage: 123 MILLIGRAM, QOD
     Route: 048
     Dates: start: 20180824

REACTIONS (1)
  - Haemorrhage intracranial [Recovered/Resolved with Sequelae]

NARRATIVE: CASE EVENT DATE: 20190124
